FAERS Safety Report 18770233 (Version 1)
Quarter: 2021Q1

REPORT INFORMATION
  Report Type: Spontaneous
  Country: US (occurrence: US)
  Receive Date: 20210121
  Receipt Date: 20210121
  Transmission Date: 20210419
  Serious: No
  Sender: FDA-Public Use
  Company Number: US-ZOGENIX INTERNATIONAL LIMITED, A WHOLLY OWNED SUBSIDIARY OF ZOGENIX, INC.-2020ZX000076

PATIENT
  Age: 17 Year
  Sex: Male

DRUGS (6)
  1. FINTEPLA [Suspect]
     Active Substance: FENFLURAMINE
     Indication: SEVERE MYOCLONIC EPILEPSY OF INFANCY
     Route: 048
     Dates: start: 20200924
  2. FINTEPLA [Suspect]
     Active Substance: FENFLURAMINE
     Dosage: QAM
     Route: 048
     Dates: start: 202010
  3. EPIDIOLEX [Concomitant]
     Active Substance: CANNABIDIOL
     Indication: SEIZURE
     Route: 048
  4. FINTEPLA [Suspect]
     Active Substance: FENFLURAMINE
     Dosage: 3.7 ML PO QAM FROM DAY 7 FORWARD
     Route: 048
  5. FINTEPLA [Suspect]
     Active Substance: FENFLURAMINE
     Dosage: 7.6 ML PO QPM FROM DAY 7 FORWARD
     Route: 048
  6. CHARLOTTES WEB CBD OIL [Concomitant]
     Indication: SEIZURE
     Route: 065

REACTIONS (1)
  - Seizure [Recovered/Resolved]

NARRATIVE: CASE EVENT DATE: 20200926
